FAERS Safety Report 17670760 (Version 5)
Quarter: 2020Q2

REPORT INFORMATION
  Report Type: Spontaneous
  Country: US (occurrence: US)
  Receive Date: 20200415
  Receipt Date: 20200526
  Transmission Date: 20200713
  Serious: Yes (Other)
  Sender: FDA-Public Use
  Company Number: US-SA-2020SA094969

PATIENT
  Age: 74 Year
  Sex: Female

DRUGS (2)
  1. GABAPENTIN. [Concomitant]
     Active Substance: GABAPENTIN
     Route: 065
  2. LANTUS SOLOSTAR [Suspect]
     Active Substance: INSULIN GLARGINE
     Indication: TYPE 2 DIABETES MELLITUS
     Dosage: 10 TO 14 UNITS, QD
     Route: 065

REACTIONS (12)
  - Product storage error [Unknown]
  - Blood glucose increased [Unknown]
  - Pain in extremity [Unknown]
  - Product use issue [Unknown]
  - Diabetes mellitus inadequate control [Unknown]
  - Pain [Unknown]
  - Chronic fatigue syndrome [Unknown]
  - Fibromyalgia [Unknown]
  - Memory impairment [Unknown]
  - Neuropathy peripheral [Unknown]
  - Stress [Unknown]
  - Attention deficit hyperactivity disorder [Unknown]
